FAERS Safety Report 19192113 (Version 4)
Quarter: 2021Q4

REPORT INFORMATION
  Report Type: Spontaneous
  Country: US (occurrence: US)
  Receive Date: 20210429
  Receipt Date: 20211109
  Transmission Date: 20220303
  Serious: Yes (Other)
  Sender: FDA-Public Use
  Company Number: US-CELGENE-USA-20190709510

PATIENT
  Age: 70 Year
  Sex: Female

DRUGS (1)
  1. OTEZLA [Suspect]
     Active Substance: APREMILAST
     Indication: Psoriasis
     Dosage: 30 MILLIGRAM, BID
     Route: 048
     Dates: start: 20180123

REACTIONS (7)
  - Tooth infection [Unknown]
  - Vomiting [Unknown]
  - Psoriasis [Not Recovered/Not Resolved]
  - Product dose omission issue [Unknown]
  - Adverse event [Not Recovered/Not Resolved]
  - Nausea [Not Recovered/Not Resolved]
  - Alopecia [Unknown]

NARRATIVE: CASE EVENT DATE: 20190101
